FAERS Safety Report 7391283-7 (Version None)
Quarter: 2011Q2

REPORT INFORMATION
  Report Type: 
  Country: None (occurrence: None)
  Receive Date: 20110404
  Receipt Date: 20100804
  Transmission Date: 20111010
  Serious: Yes (Other)
  Sender: FDA-Public Use
  Company Number: US-PFIZER INC-2010079900

PATIENT
  Sex: Female
  Weight: 86.168 kg

DRUGS (6)
  1. CALCIUM [Concomitant]
     Dosage: UNK
  2. ACETYLSALICYLIC ACID [Concomitant]
     Dosage: UNK
  3. ATIVAN [Concomitant]
     Dosage: 1 MG, UNK
  4. ZOLOFT [Suspect]
     Indication: ANXIETY
     Dosage: 100 MG, DAILY
     Route: 048
     Dates: start: 19960101
  5. ZOLOFT [Suspect]
     Indication: DEPRESSION
  6. VITAMIN D [Concomitant]
     Dosage: UNK

REACTIONS (11)
  - URINARY TRACT INFECTION [None]
  - DRUG EFFECT DECREASED [None]
  - NERVOUSNESS [None]
  - ABDOMINAL DISCOMFORT [None]
  - MALAISE [None]
  - HYPERTENSION [None]
  - ANXIETY [None]
  - HYPOTENSION [None]
  - WITHDRAWAL SYNDROME [None]
  - DYSGEUSIA [None]
  - NAUSEA [None]
